FAERS Safety Report 17361106 (Version 1)
Quarter: 2020Q1

REPORT INFORMATION
  Report Type: Spontaneous
  Country: US (occurrence: US)
  Receive Date: 20200117
  Receipt Date: 20200117
  Transmission Date: 20200409
  Serious: Yes (Hospitalization)
  Sender: FDA-Public Use
  Company Number: None

PATIENT
  Age: 55 Year
  Sex: Female
  Weight: 59.87 kg

DRUGS (1)
  1. ZOLEDRONIC ACID 5MG [Suspect]
     Active Substance: ZOLEDRONIC ACID
     Dosage: ?          OTHER FREQUENCY:YEARLY;?
     Route: 042
     Dates: start: 20191210, end: 20191210

REACTIONS (8)
  - Myalgia [None]
  - Pyrexia [None]
  - Pain [None]
  - Nausea [None]
  - Oedema peripheral [None]
  - Gait disturbance [None]
  - Vomiting [None]
  - Soft tissue disorder [None]

NARRATIVE: CASE EVENT DATE: 20191210
